FAERS Safety Report 25475294 (Version 1)
Quarter: 2025Q2

REPORT INFORMATION
  Report Type: Spontaneous
  Country: DE (occurrence: DE)
  Receive Date: 20250624
  Receipt Date: 20250624
  Transmission Date: 20250716
  Serious: Yes (Other)
  Sender: NOVARTIS
  Company Number: DE-002147023-NVSC2025DE049246

PATIENT
  Sex: Male
  Weight: 3.435 kg

DRUGS (4)
  1. KESIMPTA [Suspect]
     Active Substance: OFATUMUMAB
     Indication: Foetal exposure during pregnancy
     Dosage: MATERNAL EXPOSURE DURING PREGNANCY: 20 MG QMO
     Route: 064
     Dates: start: 2024, end: 20241204
  2. ILARIS [Suspect]
     Active Substance: CANAKINUMAB
     Indication: Foetal exposure during pregnancy
     Route: 064
     Dates: start: 2024, end: 20241125
  3. ACETAMINOPHEN [Concomitant]
     Active Substance: ACETAMINOPHEN
     Indication: Foetal exposure during pregnancy
     Route: 065
  4. ACETAMINOPHEN\BUTYLSCOPOLAMINE BROMIDE [Concomitant]
     Active Substance: ACETAMINOPHEN\BUTYLSCOPOLAMINE BROMIDE
     Indication: Foetal exposure during pregnancy
     Route: 065
     Dates: start: 202411, end: 202412

REACTIONS (5)
  - Cryopyrin associated periodic syndrome [Unknown]
  - Acquired plagiocephaly [Unknown]
  - Urticaria [Unknown]
  - Foetal exposure during pregnancy [Unknown]
  - Normal newborn [Unknown]

NARRATIVE: CASE EVENT DATE: 20250227
